FAERS Safety Report 4435603-1 (Version None)
Quarter: 2004Q3

REPORT INFORMATION
  Report Type: 
  Country: None (occurrence: None)
  Receive Date: 20040726
  Receipt Date: 20040504
  Transmission Date: 20050211
  Serious: No
  Sender: FDA-Public Use
  Company Number: USA040566612

PATIENT
  Age: 82 Year
  Sex: Male
  Weight: 68 kg

DRUGS (3)
  1. FORTEO [Suspect]
     Indication: BONE DISORDER
     Dosage: 20 UG DAY
     Dates: start: 20040301
  2. SEREVENT [Concomitant]
  3. AZMACORT [Concomitant]

REACTIONS (1)
  - INJECTION SITE HAEMORRHAGE [None]
